FAERS Safety Report 21351048 (Version 1)
Quarter: 2022Q3

REPORT INFORMATION
  Report Type: Report from Study
  Country: BR (occurrence: BR)
  Receive Date: 20220919
  Receipt Date: 20220919
  Transmission Date: 20221027
  Serious: Yes (Other)
  Sender: FDA-Public Use
  Company Number: BR-NOVARTISPH-NVSC2022BR209270

PATIENT
  Sex: Female

DRUGS (1)
  1. CYCLOSPORINE [Suspect]
     Active Substance: CYCLOSPORINE
     Indication: Vasculitis
     Dosage: UNK (TWO MONTHS AGO)
     Route: 065

REACTIONS (6)
  - Blood pressure increased [Recovered/Resolved]
  - Vasculitis [Unknown]
  - Dry mouth [Unknown]
  - Nasal dryness [Unknown]
  - Dry eye [Unknown]
  - Product use in unapproved indication [Unknown]
